FAERS Safety Report 8684950 (Version 3)
Quarter: 2013Q1

REPORT INFORMATION
  Report Type: Spontaneous
  Country: US (occurrence: US)
  Receive Date: 20120726
  Receipt Date: 20130131
  Transmission Date: 20140127
  Serious: Yes (Hospitalization)
  Sender: FDA-Public Use
  Company Number: US-ASTRAZENECA-2012SE29578

PATIENT
  Age: 68 Year
  Sex: Female
  Weight: 87.1 kg

DRUGS (11)
  1. SYMBICORT PMDI [Suspect]
     Indication: CHRONIC OBSTRUCTIVE PULMONARY DISEASE
     Dosage: 160/4.5 MCG, TWO PUFFS TWICE DAILY
     Route: 055
     Dates: start: 20120514
  2. SYMBICORT PMDI [Suspect]
     Indication: CHRONIC OBSTRUCTIVE PULMONARY DISEASE
     Dosage: 160/4.5 MCG, ONE PUFF BID
     Route: 055
  3. ASPIRIN [Suspect]
     Route: 048
  4. HCTZ [Concomitant]
  5. CALCIUM WITH VITAMIN D [Concomitant]
  6. GLUCOSAMINE/CHONDROITIN MSM [Concomitant]
     Dosage: TWO DAILY
  7. VITAMIN E [Concomitant]
  8. MULTIPLE VITAMIN [Concomitant]
     Dosage: DAILY
  9. VITAMIN D [Concomitant]
     Dosage: 1000 UNITS, BID
  10. ALBUTEROL/DUONEB [Concomitant]
     Dosage: TID
  11. SINGULAIR [Concomitant]

REACTIONS (15)
  - Bronchitis [Unknown]
  - Chronic obstructive pulmonary disease [Recovered/Resolved]
  - Dyspnoea [Recovered/Resolved]
  - Dyspnoea [Unknown]
  - Arthralgia [Unknown]
  - Fatigue [Unknown]
  - Malaise [Unknown]
  - Myalgia [Unknown]
  - Oedema peripheral [Unknown]
  - Vomiting [Unknown]
  - Cough [Unknown]
  - Hyperglycaemia [Unknown]
  - Nausea [Unknown]
  - Intentional drug misuse [Unknown]
  - Drug hypersensitivity [Unknown]
